FAERS Safety Report 12758871 (Version 1)
Quarter: 2016Q3

REPORT INFORMATION
  Report Type: Spontaneous
  Country: US (occurrence: US)
  Receive Date: 20160918
  Receipt Date: 20160918
  Transmission Date: 20161109
  Serious: Yes (Disabling)
  Sender: FDA-Public Use
  Company Number: None

PATIENT
  Age: 55 Year
  Sex: Female
  Weight: 152.01 kg

DRUGS (18)
  1. PROAIR HFA [Concomitant]
     Active Substance: ALBUTEROL SULFATE
  2. VITAMIN E [Concomitant]
     Active Substance: .ALPHA.-TOCOPHEROL
  3. LEVEMIR [Concomitant]
     Active Substance: INSULIN DETEMIR
  4. CETIRIZINE [Concomitant]
     Active Substance: CETIRIZINE HYDROCHLORIDE
  5. POTASSIUM CHLORIDE ER [Concomitant]
     Active Substance: POTASSIUM CHLORIDE
  6. KETOCONAZOLE. [Concomitant]
     Active Substance: KETOCONAZOLE
  7. ALBUTEROL. [Concomitant]
     Active Substance: ALBUTEROL
  8. GLIPIZIDE. [Concomitant]
     Active Substance: GLIPIZIDE
  9. MELOXICAM. [Concomitant]
     Active Substance: MELOXICAM
  10. MONTELUKAST [Concomitant]
     Active Substance: MONTELUKAST SODIUM
  11. METFORMIN [Concomitant]
     Active Substance: METFORMIN HYDROCHLORIDE
  12. OMEPRAZOLE. [Concomitant]
     Active Substance: OMEPRAZOLE
  13. CANDESARTAN [Concomitant]
     Active Substance: CANDESARTAN
  14. FOLIC ACID. [Concomitant]
     Active Substance: FOLIC ACID
  15. NOVOLOG [Concomitant]
     Active Substance: INSULIN ASPART
  16. TRULICITY [Suspect]
     Active Substance: DULAGLUTIDE
     Indication: TYPE 2 DIABETES MELLITUS
     Dosage: 0.75 MG OTHER SUBCUTANEOUS??
     Route: 058
     Dates: start: 20160627, end: 20160901
  17. PRAVASTATIN. [Concomitant]
     Active Substance: PRAVASTATIN
  18. VITAMIN D3 [Concomitant]
     Active Substance: CHOLECALCIFEROL

REACTIONS (3)
  - Visual impairment [None]
  - Therapy cessation [None]
  - Headache [None]

NARRATIVE: CASE EVENT DATE: 20160727
